FAERS Safety Report 15186022 (Version 1)
Quarter: 2018Q3

REPORT INFORMATION
  Report Type: Report from Study
  Country: US (occurrence: US)
  Receive Date: 20180723
  Receipt Date: 20180723
  Transmission Date: 20181010
  Serious: Yes (Death)
  Sender: FDA-Public Use
  Company Number: US-EXELIXIS-CABO-18014134

PATIENT
  Age: 57 Year
  Sex: Female

DRUGS (16)
  1. ASPIR LOW [Concomitant]
     Active Substance: ASPIRIN
  2. LEVOTHYROXIN [Concomitant]
     Active Substance: LEVOTHYROXINE
  3. TUSSIONEX PENNKINETIC [Concomitant]
     Active Substance: CHLORPHENIRAMINE\HYDROCODONE
  4. OXYCODONE [Concomitant]
     Active Substance: OXYCODONE
  5. ZOLPIDEM [Concomitant]
     Active Substance: ZOLPIDEM\ZOLPIDEM TARTRATE
  6. WARFARIN [Concomitant]
     Active Substance: WARFARIN
  7. ESCITALOPRAM OXALATE. [Concomitant]
     Active Substance: ESCITALOPRAM OXALATE
  8. COMETRIQ [Suspect]
     Active Substance: CABOZANTINIB S-MALATE
     Indication: METASTASES TO CENTRAL NERVOUS SYSTEM
  9. COMETRIQ [Suspect]
     Active Substance: CABOZANTINIB S-MALATE
     Indication: METASTASES TO LUNG
  10. ZEJULA [Suspect]
     Active Substance: NIRAPARIB
  11. CIPROFLOXACIN HCL [Concomitant]
     Active Substance: CIPROFLOXACIN HYDROCHLORIDE
  12. PROVENTIL [Concomitant]
     Active Substance: ALBUTEROL
  13. OMEPRAZOLE. [Concomitant]
     Active Substance: OMEPRAZOLE
  14. COMETRIQ [Suspect]
     Active Substance: CABOZANTINIB S-MALATE
     Indication: BREAST CANCER FEMALE
     Dosage: 60 MG, QD
     Route: 048
     Dates: start: 201708, end: 201709
  15. ONDANSETRON [Concomitant]
     Active Substance: ONDANSETRON
  16. KADCYLA [Concomitant]
     Active Substance: ADO-TRASTUZUMAB EMTANSINE

REACTIONS (2)
  - Death [Fatal]
  - Off label use [Unknown]

NARRATIVE: CASE EVENT DATE: 20180512
